FAERS Safety Report 16757569 (Version 1)
Quarter: 2019Q3

REPORT INFORMATION
  Report Type: Spontaneous
  Country: US (occurrence: US)
  Receive Date: 20190830
  Receipt Date: 20190830
  Transmission Date: 20191005
  Serious: No
  Sender: FDA-Public Use
  Company Number: US-SHIRE-US201928307

PATIENT
  Sex: Male

DRUGS (1)
  1. GATTEX [Suspect]
     Active Substance: TEDUGLUTIDE\WATER
     Indication: PRODUCT USED FOR UNKNOWN INDICATION
     Dosage: 0.551 (UNKNOWN UNIT)
     Route: 058
     Dates: start: 20190405

REACTIONS (2)
  - Abdominal discomfort [Recovering/Resolving]
  - Diarrhoea [Recovering/Resolving]
